FAERS Safety Report 6278560-8 (Version None)
Quarter: 2009Q3

REPORT INFORMATION
  Report Type: 
  Country: None (occurrence: None)
  Receive Date: 20090722
  Receipt Date: 20080911
  Transmission Date: 20100115
  Serious: No
  Sender: FDA-Public Use
  Company Number: US-BAUSCH-2008BL003963

PATIENT
  Age: 89 Year
  Sex: Male

DRUGS (3)
  1. OPCON-A [Suspect]
     Indication: LACRIMATION INCREASED
     Route: 047
     Dates: start: 20080601
  2. OPCON-A [Suspect]
     Indication: VISION BLURRED
     Route: 047
     Dates: start: 20080601
  3. OPCON-A [Suspect]
     Indication: OFF LABEL USE
     Route: 047
     Dates: start: 20080601

REACTIONS (4)
  - CONDITION AGGRAVATED [None]
  - DRUG INEFFECTIVE FOR UNAPPROVED INDICATION [None]
  - LACRIMATION INCREASED [None]
  - VISION BLURRED [None]
